FAERS Safety Report 5823155-0 (Version None)
Quarter: 2008Q3

REPORT INFORMATION
  Report Type: 
  Country: None (occurrence: None)
  Receive Date: 20080725
  Receipt Date: 20080716
  Transmission Date: 20090109
  Serious: Yes (Other)
  Sender: FDA-Public Use
  Company Number: PHHY2008JP14351

PATIENT

DRUGS (6)
  1. CYCLOSPORINE [Suspect]
     Indication: STEM CELL TRANSPLANT
     Dosage: 3 MG/KG/DAY
     Route: 042
  2. METHOTREXATE [Concomitant]
     Indication: STEM CELL TRANSPLANT
     Dosage: 10 MG/M^2
     Route: 042
  3. METHOTREXATE [Concomitant]
     Dosage: 7 MG/M^2
     Route: 042
  4. FLUDARABINE PHOSPHATE [Concomitant]
     Dosage: 30 MG/M^2
     Route: 042
  5. BUSULFAN [Concomitant]
     Dosage: 4 MG/KG
     Route: 048
  6. IRRADIATION [Concomitant]
     Dosage: 4 GY

REACTIONS (2)
  - CHRONIC GRAFT VERSUS HOST DISEASE [None]
  - CYSTITIS HAEMORRHAGIC [None]
